FAERS Safety Report 4889312-5 (Version None)
Quarter: 2006Q1

REPORT INFORMATION
  Report Type: 
  Country: None (occurrence: None)
  Receive Date: 20060124
  Receipt Date: 20060112
  Transmission Date: 20060701
  Serious: Yes (Death, Hospitalization)
  Sender: FDA-Public Use
  Company Number: US-BRISTOL-MYERS SQUIBB COMPANY-13246038

PATIENT
  Age: 76 Year
  Sex: Female
  Weight: 51 kg

DRUGS (4)
  1. PRAVACHOL [Suspect]
  2. NEXIUM [Concomitant]
  3. LANOXIN [Concomitant]
  4. ADALAT [Concomitant]

REACTIONS (2)
  - HYPOTENSION [None]
  - SEPSIS [None]
